FAERS Safety Report 4400777-5 (Version None)
Quarter: 2004Q3

REPORT INFORMATION
  Report Type: 
  Country: None (occurrence: None)
  Receive Date: 20040907
  Receipt Date: 20030603
  Transmission Date: 20050211
  Serious: No
  Sender: FDA-Public Use
  Company Number: US-BRISTOL-MYERS SQUIBB COMPANY-12291969

PATIENT
  Sex: Female

DRUGS (3)
  1. COUMADIN [Suspect]
     Indication: CARDIAC DISORDER
     Route: 048
  2. PRANDIN [Concomitant]
  3. PRINIVIL [Concomitant]

REACTIONS (2)
  - NAUSEA [None]
  - VOMITING [None]
